FAERS Safety Report 18536324 (Version 1)
Quarter: 2020Q4

REPORT INFORMATION
  Report Type: Spontaneous
  Country: US (occurrence: US)
  Receive Date: 20201123
  Receipt Date: 20201123
  Transmission Date: 20210114
  Serious: No
  Sender: FDA-Public Use
  Company Number: US-PFIZER INC-2020458351

PATIENT
  Age: 45 Year
  Sex: Female

DRUGS (2)
  1. SERTRALINE HCL [Suspect]
     Active Substance: SERTRALINE HYDROCHLORIDE
     Dosage: 75 MG (ONE 50MG AND ONE 25MG)
     Dates: start: 20201106
  2. SERTRALINE HCL [Suspect]
     Active Substance: SERTRALINE HYDROCHLORIDE
     Dosage: 25 MG (STARTED AT 25 MG THEN WENT UP TO 75 MG)
     Dates: start: 2010

REACTIONS (2)
  - Exposure during pregnancy [Unknown]
  - Ulcer [Unknown]
